FAERS Safety Report 7409903-7 (Version None)
Quarter: 2011Q2

REPORT INFORMATION
  Report Type: 
  Country: None (occurrence: None)
  Receive Date: 20110412
  Receipt Date: 20110405
  Transmission Date: 20111010
  Serious: Yes (Hospitalization, Other)
  Sender: FDA-Public Use
  Company Number: KR-ELI_LILLY_AND_COMPANY-KR201104001387

PATIENT
  Age: 57 Year
  Sex: Female
  Weight: 58 kg

DRUGS (1)
  1. HUMALOG MIX 50/50 [Suspect]
     Indication: TYPE 2 DIABETES MELLITUS
     Dosage: 16 U, TID
     Route: 058
     Dates: start: 20101201

REACTIONS (5)
  - CORNEAL OPERATION [None]
  - CATARACT [None]
  - RENAL IMPAIRMENT [None]
  - HYPOGLYCAEMIC UNCONSCIOUSNESS [None]
  - DECREASED APPETITE [None]
